FAERS Safety Report 14519193 (Version 1)
Quarter: 2018Q1

REPORT INFORMATION
  Report Type: Spontaneous
  Country: SE (occurrence: SE)
  Receive Date: 20180212
  Receipt Date: 20180212
  Transmission Date: 20180509
  Serious: Yes (Other)
  Sender: FDA-Public Use
  Company Number: SE-PFIZER INC-2018058519

PATIENT
  Age: 42 Year
  Sex: Female

DRUGS (1)
  1. PROVERA [Suspect]
     Active Substance: MEDROXYPROGESTERONE ACETATE
     Indication: ENDOMETRIOSIS
     Dosage: 5 MG, AS NEEDED
     Route: 048

REACTIONS (2)
  - Dizziness [Unknown]
  - Vision blurred [Unknown]

NARRATIVE: CASE EVENT DATE: 20180108
